FAERS Safety Report 22822006 (Version 2)
Quarter: 2024Q2

REPORT INFORMATION
  Report Type: Report from Study
  Country: FR (occurrence: FR)
  Receive Date: 20230814
  Receipt Date: 20240424
  Transmission Date: 20240716
  Serious: Yes (Death, Hospitalization)
  Sender: FDA-Public Use
  Company Number: FR-MIRATI-MT2023PM04598

PATIENT
  Age: 53 Year
  Sex: Male
  Weight: 57 kg

DRUGS (6)
  1. KRAZATI [Suspect]
     Active Substance: ADAGRASIB
     Indication: Non-small cell lung cancer
     Dosage: 600 MG, BID (MORNING AND EVENING)
     Route: 048
     Dates: start: 20230724, end: 20230810
  2. KRAZATI [Suspect]
     Active Substance: ADAGRASIB
     Indication: Lung adenocarcinoma
  3. METHADONE [Suspect]
     Active Substance: METHADONE HYDROCHLORIDE
     Indication: Pain
     Dosage: 20 MG
     Dates: end: 20230808
  4. PECFENT [Suspect]
     Active Substance: FENTANYL CITRATE
     Indication: Pain
     Dosage: 600 MG, BID (MORNING AND EVENING)
     Route: 048
     Dates: start: 20230724, end: 20230810
  5. PECFENT [Suspect]
     Active Substance: FENTANYL CITRATE
     Indication: Lung adenocarcinoma
  6. DOLIPRANE [Concomitant]
     Active Substance: ACETAMINOPHEN
     Dosage: 1 G

REACTIONS (1)
  - Status epilepticus [Fatal]

NARRATIVE: CASE EVENT DATE: 20230808
